FAERS Safety Report 16188669 (Version 1)
Quarter: 2019Q2

REPORT INFORMATION
  Report Type: Report from Study
  Country: IE (occurrence: IE)
  Receive Date: 20190412
  Receipt Date: 20190412
  Transmission Date: 20190711
  Serious: Yes (Hospitalization, Other)
  Sender: FDA-Public Use
  Company Number: PHHY2019IE079854

PATIENT
  Age: 56 Year
  Sex: Male

DRUGS (1)
  1. COSENTYX [Suspect]
     Active Substance: SECUKINUMAB
     Indication: PSORIATIC ARTHROPATHY
     Dosage: 300 MG, ONCE/SINGLE
     Route: 058
     Dates: start: 20190205

REACTIONS (1)
  - Arthritis bacterial [Unknown]

NARRATIVE: CASE EVENT DATE: 201902
